FAERS Safety Report 11891419 (Version 1)
Quarter: 2016Q1

REPORT INFORMATION
  Report Type: Spontaneous
  Country: IT (occurrence: IT)
  Receive Date: 20160106
  Receipt Date: 20160106
  Transmission Date: 20160526
  Serious: Yes (Hospitalization)
  Sender: FDA-Public Use
  Company Number: IT-TEVA-622358ACC

PATIENT
  Age: 61 Year
  Sex: Female

DRUGS (1)
  1. CARBOPLATIN. [Suspect]
     Active Substance: CARBOPLATIN
     Indication: UTERINE CANCER
     Dosage: 600 MG TOTAL
     Route: 042
     Dates: start: 20151117, end: 20151117

REACTIONS (5)
  - Hyperhidrosis [Recovered/Resolved with Sequelae]
  - Pulse abnormal [Recovered/Resolved with Sequelae]
  - Vomiting [Recovered/Resolved with Sequelae]
  - Retching [Unknown]
  - Formication [Recovered/Resolved with Sequelae]

NARRATIVE: CASE EVENT DATE: 20151117
